FAERS Safety Report 6971671-0 (Version None)
Quarter: 2010Q3

REPORT INFORMATION
  Report Type: 
  Country: None (occurrence: None)
  Receive Date: 20100908
  Receipt Date: 20100901
  Transmission Date: 20110219
  Serious: Yes (Death, Life-Threatening, Hospitalization, Disabling, Other)
  Sender: FDA-Public Use
  Company Number: PHHY2010AU55305

PATIENT
  Sex: Male

DRUGS (4)
  1. CLOZARIL [Suspect]
     Dosage: 600 MG, QD
     Route: 048
     Dates: start: 20000531
  2. CLOZARIL [Suspect]
     Dosage: DOSE DECREASED BY HALF
     Route: 048
     Dates: end: 20100818
  3. VENLAFAXINE HYDROCHLORIDE [Concomitant]
     Dosage: 225 MG
     Route: 048
     Dates: end: 20100818
  4. BISOPROLOL FUMARATE [Concomitant]
     Dosage: 2.5 MG
     Route: 048

REACTIONS (2)
  - DEATH [None]
  - INFECTION [None]
